FAERS Safety Report 8837433 (Version 1)
Quarter: 2012Q4

REPORT INFORMATION
  Report Type: Report from Study
  Country: ES (occurrence: ES)
  Receive Date: 20121012
  Receipt Date: 20121012
  Transmission Date: 20130627
  Serious: Yes (Hospitalization)
  Sender: FDA-Public Use
  Company Number: ES-MILLENNIUM PHARMACEUTICALS, INC.-2012-04018

PATIENT

DRUGS (3)
  1. VELCADE [Suspect]
     Indication: MULTIPLE MYELOMA
     Dosage: 2.3 mg, UNK
     Route: 065
     Dates: start: 20120514
  2. DEXAMETHASONE [Concomitant]
     Indication: MULTIPLE MYELOMA
     Dosage: 20 mg, UNK
     Dates: start: 20120514
  3. ZOMETA [Concomitant]
     Indication: MULTIPLE MYELOMA
     Dosage: 4 mg, UNK
     Dates: start: 20120514

REACTIONS (1)
  - Gastrointestinal hypomotility [Recovered/Resolved]
